FAERS Safety Report 22293494 (Version 1)
Quarter: 2023Q2

REPORT INFORMATION
  Report Type: Report from Study
  Country: EG (occurrence: EG)
  Receive Date: 20230508
  Receipt Date: 20230508
  Transmission Date: 20230722
  Serious: Yes (Other)
  Sender: FDA-Public Use
  Company Number: EG-002147023-NVSC2023EG100606

PATIENT
  Age: 72 Year
  Sex: Female

DRUGS (5)
  1. KISQALI [Suspect]
     Active Substance: RIBOCICLIB
     Indication: Breast cancer
     Dosage: 3 DOSAGE FORM, QD (3 TABLETS ONCE PER DAY FOR 21 DAYS AND 1 WEEK OFF)
     Route: 048
     Dates: start: 202207, end: 202304
  2. FASLODEX [Concomitant]
     Active Substance: FULVESTRANT
     Indication: Breast cancer
     Dosage: 1 DOSAGE FORM, QMO (ONE INJECTION PER MONTH)
     Route: 065
     Dates: start: 202207
  3. EXFORGE [Concomitant]
     Active Substance: AMLODIPINE BESYLATE\VALSARTAN
     Indication: Hypertension
     Dosage: 2 DOSAGE FORM, QD (2 TABLETS PER DAY) (STRENGTH: 160/10) (5 YEARS AGO)
     Route: 065
  4. BISOPROLOL FUMARATE [Concomitant]
     Active Substance: BISOPROLOL FUMARATE
     Indication: Hypertension
     Dosage: 1 DOSAGE FORM, QD (ONE TABLET PER DAY) (5 YEARS AGO)
     Route: 065
  5. MIXTARD HUMAN 70/30 [Concomitant]
     Active Substance: INSULIN HUMAN
     Indication: Hyperglycaemia
     Dosage: 30 ML, BID (30MLS 2 TIMES DAILY( 30MLS IN THE MORNING AND 30MLS AT NIGHT) (5 YEARS AGO) (STRENGTH: 3
     Route: 065

REACTIONS (3)
  - Pulmonary oedema [Recovered/Resolved]
  - Oxygen saturation decreased [Recovered/Resolved]
  - Pulmonary arterial pressure increased [Recovered/Resolved]

NARRATIVE: CASE EVENT DATE: 20230201
